FAERS Safety Report 17543815 (Version 1)
Quarter: 2020Q1

REPORT INFORMATION
  Report Type: Spontaneous
  Country: DE (occurrence: DE)
  Receive Date: 20200316
  Receipt Date: 20200316
  Transmission Date: 20200409
  Serious: Yes (Hospitalization)
  Sender: FDA-Public Use
  Company Number: DE-TEVA-2020-DE-1199184

PATIENT
  Age: 84 Year
  Sex: Male
  Weight: 72 kg

DRUGS (7)
  1. PANTOPRAZOL [Concomitant]
     Active Substance: PANTOPRAZOLE SODIUM
     Dosage: 40 MG, 1-0-0-0
  2. BISOPROLOL [Suspect]
     Active Substance: BISOPROLOL
     Dosage: 2.5 MG, 1-0-1-0
     Route: 065
  3. ENTRESTO [Suspect]
     Active Substance: SACUBITRIL\VALSARTAN
     Dosage: 1-0-1-0
  4. ELIQUIS [Concomitant]
     Active Substance: APIXABAN
     Dosage: 1-0-1-0
  5. ATORVASTATIN [Concomitant]
     Active Substance: ATORVASTATIN
     Dosage: 20 MG, 0-0-1-0
  6. TORASEMID [Concomitant]
     Active Substance: TORSEMIDE
     Dosage: 20 MG, 1-1-0-0
  7. KALINOR-RETARD P 600MG [Concomitant]
     Dosage: 1-0-1-0

REACTIONS (13)
  - Renal impairment [Unknown]
  - General physical health deterioration [Unknown]
  - Weight increased [Unknown]
  - Oedema peripheral [Unknown]
  - Joint swelling [Unknown]
  - Fall [Unknown]
  - Atrial fibrillation [Unknown]
  - Haemarthrosis [Unknown]
  - Musculoskeletal pain [Unknown]
  - Jugular vein distension [Unknown]
  - Tachycardia [Unknown]
  - Ascites [Unknown]
  - Condition aggravated [Unknown]
